FAERS Safety Report 17651580 (Version 1)
Quarter: 2020Q2

REPORT INFORMATION
  Report Type: Spontaneous
  Country: US (occurrence: US)
  Receive Date: 20200409
  Receipt Date: 20200409
  Transmission Date: 20200713
  Serious: Yes (Hospitalization)
  Sender: FDA-Public Use
  Company Number: None

PATIENT
  Age: 65 Year
  Sex: Male
  Weight: 67.13 kg

DRUGS (1)
  1. RIBAVIRIN. [Suspect]
     Active Substance: RIBAVIRIN
     Indication: HEPATITIS C
     Route: 048
     Dates: start: 20180627, end: 20180826

REACTIONS (11)
  - Blood lactate dehydrogenase increased [None]
  - Thrombocytopenia [None]
  - Haemoglobin decreased [None]
  - Back pain [None]
  - Reticulocyte count increased [None]
  - International normalised ratio abnormal [None]
  - Blood potassium decreased [None]
  - Blood bilirubin increased [None]
  - Haemolytic anaemia [None]
  - Haematocrit decreased [None]
  - Platelet count decreased [None]

NARRATIVE: CASE EVENT DATE: 20180830
